FAERS Safety Report 4479990-7 (Version None)
Quarter: 2004Q3

REPORT INFORMATION
  Report Type: 
  Country: None (occurrence: None)
  Receive Date: 20040930
  Receipt Date: 20040820
  Transmission Date: 20050211
  Serious: No
  Sender: FDA-Public Use
  Company Number: 200410309BBE

PATIENT
  Age: 23 Year
  Sex: Female
  Weight: 50.8029 kg

DRUGS (1)
  1. GAMUNEX [Suspect]
     Indication: IDIOPATHIC THROMBOCYTOPENIC PURPURA
     Dosage: 20 G, INTRAVENOUS
     Route: 042
     Dates: start: 20040818, end: 20040819

REACTIONS (1)
  - HEADACHE [None]
